FAERS Safety Report 13192927 (Version 2)
Quarter: 2017Q1

REPORT INFORMATION
  Report Type: Report from Study
  Country: US (occurrence: US)
  Receive Date: 20170207
  Receipt Date: 20170214
  Transmission Date: 20170428
  Serious: Yes (Death, Other)
  Sender: FDA-Public Use
  Company Number: US-GILEAD-2017-0256922

PATIENT
  Age: 59 Year
  Sex: Female
  Weight: 96.6 kg

DRUGS (12)
  1. AMIODARONE [Concomitant]
     Active Substance: AMIODARONE
  2. HUMALOG [Concomitant]
     Active Substance: INSULIN LISPRO
  3. AMBRISENTAN [Suspect]
     Active Substance: AMBRISENTAN
     Indication: PULMONARY ARTERIAL HYPERTENSION
     Dosage: 5 MG, QD
     Route: 048
     Dates: start: 20151229
  4. ASA [Concomitant]
     Active Substance: ASPIRIN
  5. PRILOSEC [Concomitant]
     Active Substance: OMEPRAZOLE MAGNESIUM
  6. LANTUS [Concomitant]
     Active Substance: INSULIN GLARGINE
  7. SILDENAFIL. [Concomitant]
     Active Substance: SILDENAFIL
  8. CARVEDILOL. [Concomitant]
     Active Substance: CARVEDILOL
  9. LISINOPRIL. [Concomitant]
     Active Substance: LISINOPRIL
  10. FLONASE                            /00908302/ [Concomitant]
     Active Substance: MOMETASONE FUROATE
  11. MYFORTIC [Concomitant]
     Active Substance: MYCOPHENOLATE SODIUM
  12. WARFARIN [Concomitant]
     Active Substance: WARFARIN

REACTIONS (1)
  - Death [Fatal]

NARRATIVE: CASE EVENT DATE: 20161125
